FAERS Safety Report 4442044-X (Version None)
Quarter: 2004Q3

REPORT INFORMATION
  Report Type: 
  Country: None (occurrence: None)
  Receive Date: 20040901
  Receipt Date: 20040823
  Transmission Date: 20050211
  Serious: Yes (Hospitalization, Other)
  Sender: FDA-Public Use
  Company Number: NLWYE988219AUG04

PATIENT
  Age: 54 Year
  Sex: Male

DRUGS (6)
  1. RAPAMUNE [Suspect]
     Indication: RENAL TRANSPLANT
     Dosage: 5 MG 1 X PER 1 DAY
     Route: 048
     Dates: start: 20040622
  2. RAPAMUNE [Suspect]
     Indication: SQUAMOUS CELL CARCINOMA OF SKIN
     Dosage: 5 MG 1 X PER 1 DAY
     Route: 048
     Dates: start: 20040622
  3. PREDNISONE [Concomitant]
  4. PRAVASTATIN [Concomitant]
  5. RANITIDINE [Concomitant]
  6. SINTROM [Concomitant]

REACTIONS (1)
  - BLOOD CREATININE INCREASED [None]
